FAERS Safety Report 9855826 (Version 1)
Quarter: 2014Q1

REPORT INFORMATION
  Report Type: Spontaneous
  Country: US (occurrence: US)
  Receive Date: 20140130
  Receipt Date: 20140130
  Transmission Date: 20141002
  Serious: Yes (Death)
  Sender: FDA-Public Use
  Company Number: US-CELGENEUS-163-22393-14014001

PATIENT
  Sex: Male
  Weight: 84.44 kg

DRUGS (1)
  1. ISTODAX [Suspect]
     Indication: LYMPHOMA
     Route: 065
     Dates: start: 20131216

REACTIONS (1)
  - Death [Fatal]
